FAERS Safety Report 10586886 (Version 1)
Quarter: 2014Q4

REPORT INFORMATION
  Report Type: Spontaneous
  Country: US (occurrence: US)
  Receive Date: 20141117
  Receipt Date: 20141117
  Transmission Date: 20150529
  Serious: Yes (Hospitalization, Other)
  Sender: FDA-Public Use
  Company Number: US-RANBAXY-2014US-87833

PATIENT
  Sex: Male

DRUGS (1)
  1. ABSORICA [Suspect]
     Active Substance: ISOTRETINOIN
     Indication: ACNE
     Route: 065

REACTIONS (6)
  - Aggression [Unknown]
  - Dyspnoea [Unknown]
  - Depression [Unknown]
  - Weight decreased [Unknown]
  - Agitation [Unknown]
  - Self injurious behaviour [Unknown]
